FAERS Safety Report 7250632-0 (Version None)
Quarter: 2011Q1

REPORT INFORMATION
  Report Type: 
  Country: None (occurrence: None)
  Receive Date: 20110128
  Receipt Date: 20110118
  Transmission Date: 20110831
  Serious: Yes (Hospitalization)
  Sender: FDA-Public Use
  Company Number: JP-JNJFOC-20110106739

PATIENT
  Sex: Female

DRUGS (6)
  1. PONTAL [Concomitant]
     Indication: UPPER RESPIRATORY TRACT INFLAMMATION
     Route: 048
  2. MEDICON [Concomitant]
     Indication: UPPER RESPIRATORY TRACT INFLAMMATION
     Route: 048
  3. LEVOFLOXACIN [Suspect]
     Indication: CYSTITIS
     Route: 048
  4. AMBROXOL HYDROCHLORIDE [Concomitant]
     Indication: UPPER RESPIRATORY TRACT INFLAMMATION
     Route: 048
  5. CHLORPHENIRAMINE MALEATE [Concomitant]
     Indication: UPPER RESPIRATORY TRACT INFLAMMATION
     Route: 048
  6. CALONAL [Concomitant]
     Indication: CYSTITIS
     Route: 048

REACTIONS (4)
  - DIZZINESS [None]
  - URTICARIA [None]
  - CONTRAINDICATION TO MEDICAL TREATMENT [None]
  - SHOCK [None]
